FAERS Safety Report 7440939-6 (Version None)
Quarter: 2011Q2

REPORT INFORMATION
  Report Type: 
  Country: None (occurrence: None)
  Receive Date: 20110427
  Receipt Date: 20110419
  Transmission Date: 20111010
  Serious: Yes (Other)
  Sender: FDA-Public Use
  Company Number: PHHY2011US27686

PATIENT
  Sex: Female

DRUGS (1)
  1. AMLODIPINE BESYLATE AND BENAZEPRIL HCL [Suspect]
     Dosage: UNK UKN, UNK

REACTIONS (5)
  - PSORIASIS [None]
  - CONSTIPATION [None]
  - HEART RATE IRREGULAR [None]
  - PALPITATIONS [None]
  - ALLERGY TO CHEMICALS [None]
